FAERS Safety Report 5216880-6 (Version None)
Quarter: 2007Q1

REPORT INFORMATION
  Report Type: 
  Country: None (occurrence: None)
  Receive Date: 20070119
  Receipt Date: 20070105
  Transmission Date: 20070707
  Serious: Yes (Other)
  Sender: FDA-Public Use
  Company Number: PAR_1015_2006

PATIENT
  Age: 72 Year
  Sex: Female
  Weight: 80.7403 kg

DRUGS (2)
  1. QUESTRAN [Suspect]
     Indication: DIARRHOEA
     Dosage: 1 DF QD PO
     Route: 048
     Dates: start: 20060301
  2. LISINOPRIL [Concomitant]

REACTIONS (2)
  - MESOTHELIOMA MALIGNANT [None]
  - PULMONARY OEDEMA [None]
